FAERS Safety Report 7745967-9 (Version None)
Quarter: 2011Q3

REPORT INFORMATION
  Report Type: 
  Country: None (occurrence: None)
  Receive Date: 20110913
  Receipt Date: 20110901
  Transmission Date: 20111222
  Serious: Yes (Life-Threatening)
  Sender: FDA-Public Use
  Company Number: CN-NOVOPROD-334380

PATIENT

DRUGS (1)
  1. NOVOLIN R [Suspect]
     Indication: PRODUCT USED FOR UNKNOWN INDICATION
     Dosage: UNK

REACTIONS (3)
  - PRODUCT QUALITY ISSUE [None]
  - SHOCK [None]
  - PRODUCT COUNTERFEIT [None]
